FAERS Safety Report 4637414-0 (Version None)
Quarter: 2005Q2

REPORT INFORMATION
  Report Type: 
  Country: None (occurrence: None)
  Receive Date: 20050418
  Receipt Date: 20050216
  Transmission Date: 20051028
  Serious: No
  Sender: FDA-Public Use
  Company Number: US-BRISTOL-MYERS SQUIBB COMPANY-12863908

PATIENT
  Age: 89 Year
  Sex: Female
  Weight: 48 kg

DRUGS (3)
  1. HYDREA [Suspect]
     Indication: POLYCYTHAEMIA VERA
     Dosage: DOSING FOR 10 YRS DOSE INCREASED TO 1 CAP/DAY (500 MG) 6 MONTHS PRIOR
     Route: 048
     Dates: start: 20040101, end: 20050112
  2. ZIAC [Concomitant]
  3. ACTONEL [Concomitant]

REACTIONS (2)
  - DECUBITUS ULCER [None]
  - OEDEMA PERIPHERAL [None]
